FAERS Safety Report 7776395-8 (Version None)
Quarter: 2011Q3

REPORT INFORMATION
  Report Type: 
  Country: None (occurrence: None)
  Receive Date: 20110926
  Receipt Date: 20110921
  Transmission Date: 20111222
  Serious: Yes (Other)
  Sender: FDA-Public Use
  Company Number: DE-PFIZER INC-2011175413

PATIENT
  Age: 32 Year
  Weight: 75 kg

DRUGS (4)
  1. RAMIPRIL [Concomitant]
     Indication: CARDIAC FAILURE
     Dosage: 5 MG/DAY
  2. METOPROLOL SUCCINATE [Concomitant]
     Indication: CARDIAC FAILURE
     Dosage: 47.5 MG/DAY
  3. BUPRENORPHINE [Suspect]
     Indication: MYALGIA
     Dosage: 35 UG/H
     Route: 062
  4. LYRICA [Suspect]
     Indication: MYALGIA
     Dosage: 150 MG, 2X/DAY
     Dates: start: 20110718

REACTIONS (1)
  - RESPIRATORY DEPRESSION [None]
